FAERS Safety Report 21177766 (Version 3)
Quarter: 2022Q3

REPORT INFORMATION
  Report Type: Spontaneous
  Country: US (occurrence: US)
  Receive Date: 20220805
  Receipt Date: 20220926
  Transmission Date: 20221027
  Serious: No
  Sender: FDA-Public Use
  Company Number: US-PFIZER INC-PV202200036894

PATIENT
  Age: 61 Year
  Sex: Male

DRUGS (1)
  1. IBRANCE [Suspect]
     Active Substance: PALBOCICLIB
     Dosage: UNK

REACTIONS (6)
  - Pain [Unknown]
  - Nausea [Unknown]
  - Decreased appetite [Unknown]
  - Hot flush [Unknown]
  - Stomatitis [Unknown]
  - Weight decreased [Unknown]
